FAERS Safety Report 6173628-9 (Version None)
Quarter: 2009Q2

REPORT INFORMATION
  Report Type: 
  Country: None (occurrence: None)
  Receive Date: 20090430
  Receipt Date: 20090424
  Transmission Date: 20091009
  Serious: Yes (Other)
  Sender: FDA-Public Use
  Company Number: IT-MERCK-0903ITA00018

PATIENT
  Age: 21 Year
  Sex: Male

DRUGS (2)
  1. SINGULAIR [Suspect]
     Indication: ASTHMA
     Route: 048
     Dates: start: 20080101, end: 20090301
  2. SINGULAIR [Suspect]
     Indication: HYPERSENSITIVITY
     Route: 048
     Dates: start: 20080101, end: 20090301

REACTIONS (5)
  - ACUTE SINUSITIS [None]
  - ALLERGIC GRANULOMATOUS ANGIITIS [None]
  - ASPERGILLOSIS [None]
  - CANDIDIASIS [None]
  - NASAL POLYPS [None]
